FAERS Safety Report 16985133 (Version 1)
Quarter: 2019Q4

REPORT INFORMATION
  Report Type: Spontaneous
  Country: US (occurrence: US)
  Receive Date: 20191101
  Receipt Date: 20191101
  Transmission Date: 20200122
  Serious: Yes (Hospitalization)
  Sender: FDA-Public Use
  Company Number: US-FRESENIUS KABI-FK201912078

PATIENT
  Age: 13 Month
  Sex: Male
  Weight: 2.3 kg

DRUGS (1)
  1. PARACETAMOL (MANUFACTURER UNKNOWN) [Suspect]
     Active Substance: ACETAMINOPHEN
     Indication: RESPIRATORY SYNCYTIAL VIRUS INFECTION
     Route: 065

REACTIONS (2)
  - Hepatomegaly [Recovered/Resolved]
  - Hepatic failure [Recovered/Resolved]
